FAERS Safety Report 15164739 (Version 3)
Quarter: 2019Q1

REPORT INFORMATION
  Report Type: Spontaneous
  Country: US (occurrence: US)
  Receive Date: 20180719
  Receipt Date: 20190305
  Transmission Date: 20190417
  Serious: No
  Sender: FDA-Public Use
  Company Number: US-SA-2018SA193210

PATIENT
  Age: 31 Year
  Sex: Male

DRUGS (2)
  1. ULORIC [Concomitant]
     Active Substance: FEBUXOSTAT
     Dosage: 80 MG
  2. DUPIXENT [Suspect]
     Active Substance: DUPILUMAB
     Indication: DERMATITIS ATOPIC
     Dosage: 300 MG, QOW
     Route: 058
     Dates: start: 20170725

REACTIONS (2)
  - Superficial injury of eye [Not Recovered/Not Resolved]
  - Eczema [Not Recovered/Not Resolved]
